FAERS Safety Report 19226026 (Version 1)
Quarter: 2021Q2

REPORT INFORMATION
  Report Type: Spontaneous
  Country: US (occurrence: US)
  Receive Date: 20210506
  Receipt Date: 20210506
  Transmission Date: 20210717
  Serious: Yes (Other)
  Sender: FDA-Public Use
  Company Number: US-ASTRAZENECA-2021A380754

PATIENT
  Sex: Female

DRUGS (3)
  1. TUDORZA [Concomitant]
     Active Substance: ACLIDINIUM BROMIDE
     Indication: CHRONIC OBSTRUCTIVE PULMONARY DISEASE
  2. BREO ELLIPTA [Concomitant]
     Active Substance: FLUTICASONE FUROATE\VILANTEROL TRIFENATATE
     Indication: INTERSTITIAL LUNG DISEASE
  3. BREZTRI [Suspect]
     Active Substance: BUDESONIDE\FORMOTEROL\GLYCOPYRRONIUM
     Indication: INTERSTITIAL LUNG DISEASE
     Dosage: 160/9/4.8 MCG, 2 PUFFS TWICE DAILY
     Route: 055
     Dates: start: 20210421

REACTIONS (7)
  - Dyspnoea [Unknown]
  - Tremor [Recovered/Resolved]
  - Intentional device misuse [Unknown]
  - Device malfunction [Unknown]
  - Near death experience [Unknown]
  - Dysphonia [Unknown]
  - Heart rate abnormal [Unknown]
